FAERS Safety Report 6541311-3 (Version None)
Quarter: 2010Q1

REPORT INFORMATION
  Report Type: 
  Country: None (occurrence: None)
  Receive Date: 20100118
  Receipt Date: 20100105
  Transmission Date: 20100710
  Serious: Yes (Other)
  Sender: FDA-Public Use
  Company Number: PE-ELI_LILLY_AND_COMPANY-PE201001000960

PATIENT
  Sex: Female

DRUGS (2)
  1. ZYPREXA [Suspect]
     Indication: SCHIZOAFFECTIVE DISORDER
     Dosage: 10 MG, UNKNOWN
     Route: 030
  2. CLONAZEPAN [Concomitant]
     Dosage: UNK, UNKNOWN
     Route: 065

REACTIONS (3)
  - APNOEA [None]
  - DISCOMFORT [None]
  - DYSPNOEA [None]
